FAERS Safety Report 24837282 (Version 2)
Quarter: 2025Q4

REPORT INFORMATION
  Report Type: Spontaneous
  Country: CA (occurrence: CA)
  Receive Date: 20250113
  Receipt Date: 20251022
  Transmission Date: 20260118
  Serious: Yes (Other)
  Sender: PFIZER
  Company Number: CA-PFIZER INC-202400226801

PATIENT
  Age: 62 Year
  Sex: Female
  Weight: 62.2 kg

DRUGS (5)
  1. RUXIENCE [Suspect]
     Active Substance: RITUXIMAB-PVVR
     Indication: Granulomatosis with polyangiitis
     Dosage: 1000 MG, DAY 0 AND DAY 14
     Route: 042
     Dates: start: 20240815
  2. RUXIENCE [Suspect]
     Active Substance: RITUXIMAB-PVVR
     Dosage: 1000 MG, DAY 0 AND DAY 14
     Route: 042
     Dates: start: 20240830
  3. RUXIENCE [Suspect]
     Active Substance: RITUXIMAB-PVVR
     Dosage: 500 MG,EVERY 6 MONTHS
     Route: 042
     Dates: start: 20250307
  4. RUXIENCE [Suspect]
     Active Substance: RITUXIMAB-PVVR
     Dosage: 500 MG,32 WEEKS(500 MG, EVERY 6 MONTHS)
     Route: 042
     Dates: start: 20251017
  5. MYELOPEROXIDASE [Concomitant]
     Active Substance: MYELOPEROXIDASE
     Indication: Antineutrophil cytoplasmic antibody
     Dosage: UNK

REACTIONS (5)
  - Laryngeal stenosis [Unknown]
  - Pulmonary cavitation [Unknown]
  - Bronchial disorder [Unknown]
  - Off label use [Unknown]
  - Inappropriate schedule of product administration [Unknown]

NARRATIVE: CASE EVENT DATE: 20240815
